FAERS Safety Report 9772841 (Version 3)
Quarter: 2014Q1

REPORT INFORMATION
  Report Type: Spontaneous
  Country: SE (occurrence: SE)
  Receive Date: 20131219
  Receipt Date: 20140305
  Transmission Date: 20141002
  Serious: Yes (Other)
  Sender: FDA-Public Use
  Company Number: SE-PFIZER INC-2013329101

PATIENT
  Age: 51 Year
  Sex: Male

DRUGS (4)
  1. BOSULIF [Suspect]
     Indication: CHRONIC MYELOID LEUKAEMIA
     Dosage: 500 MG, 1X/DAY
     Route: 048
     Dates: start: 20130921, end: 20131105
  2. INSULIN LANTUS [Concomitant]
     Indication: DIABETES MELLITUS
     Dosage: UNK
  3. INSULIN NOVORAPID [Concomitant]
     Indication: DIABETES MELLITUS
     Dosage: UNK
  4. LOPERAMIDE [Concomitant]
     Dosage: 2 MG, AS NEEDED

REACTIONS (4)
  - Amylase increased [Recovering/Resolving]
  - Transaminases increased [Recovering/Resolving]
  - Abdominal pain [Unknown]
  - Nausea [Unknown]
